FAERS Safety Report 9848034 (Version 1)
Quarter: 2014Q1

REPORT INFORMATION
  Report Type: Spontaneous
  Country: US (occurrence: None)
  Receive Date: 20140124
  Receipt Date: 20140124
  Transmission Date: 20141002
  Serious: No
  Sender: FDA-Public Use
  Company Number: None

PATIENT
  Age: 26 Year
  Sex: Female
  Weight: 68.04 kg

DRUGS (1)
  1. NEXPHARM [Suspect]

REACTIONS (3)
  - Migraine with aura [None]
  - Influenza like illness [None]
  - Implant site pain [None]
